FAERS Safety Report 7514697-0 (Version None)
Quarter: 2011Q2

REPORT INFORMATION
  Report Type: 
  Country: None (occurrence: None)
  Receive Date: 20110601
  Receipt Date: 20110518
  Transmission Date: 20111010
  Serious: Yes (Hospitalization, Other)
  Sender: FDA-Public Use
  Company Number: US-RANBAXY-2011US-44717

PATIENT

DRUGS (3)
  1. AMNESTEEM [Suspect]
     Indication: ACNE
     Dosage: UNK
     Route: 048
  2. ISOTRETINOIN [Suspect]
     Indication: ACNE
     Dosage: UNK, UNK
     Route: 048
  3. CLARAVIS [Suspect]
     Indication: ACNE
     Dosage: UNK
     Route: 048

REACTIONS (5)
  - INFLAMMATORY BOWEL DISEASE [None]
  - FREQUENT BOWEL MOVEMENTS [None]
  - RECTAL HAEMORRHAGE [None]
  - ABDOMINAL PAIN [None]
  - DIARRHOEA [None]
